FAERS Safety Report 13891823 (Version 1)
Quarter: 2017Q3

REPORT INFORMATION
  Report Type: Report from Study
  Country: CA (occurrence: CA)
  Receive Date: 20170822
  Receipt Date: 20170822
  Transmission Date: 20171127
  Serious: Yes (Other)
  Sender: FDA-Public Use
  Company Number: CA-TAKEDA-2017TUS017469

PATIENT
  Age: 54 Year
  Sex: Female

DRUGS (3)
  1. ATIVAN [Concomitant]
     Active Substance: LORAZEPAM
     Dosage: UNK
  2. VEDOLIZUMAB [Suspect]
     Active Substance: VEDOLIZUMAB
     Indication: COLITIS ULCERATIVE
     Dosage: 300 MG, UNK
     Route: 042
     Dates: start: 20160217
  3. CELEXA                             /01400501/ [Concomitant]
     Active Substance: CELECOXIB
     Dosage: UNK

REACTIONS (4)
  - Foot fracture [Unknown]
  - Vaginal infection [Not Recovered/Not Resolved]
  - Fall [Unknown]
  - Clumsiness [Unknown]

NARRATIVE: CASE EVENT DATE: 201707
